FAERS Safety Report 5098258-1 (Version None)
Quarter: 2006Q3

REPORT INFORMATION
  Report Type: 
  Country: None (occurrence: None)
  Receive Date: 20060906
  Receipt Date: 20060727
  Transmission Date: 20061208
  Serious: Yes (Hospitalization, Other)
  Sender: FDA-Public Use
  Company Number: HQWYE484228JUL06

PATIENT
  Sex: Female
  Weight: 51 kg

DRUGS (7)
  1. ENBREL [Suspect]
     Indication: RHEUMATOID ARTHRITIS
     Route: 058
     Dates: start: 20050721
  2. EVISTA [Concomitant]
     Indication: OSTEOPOROSIS PROPHYLAXIS
     Route: 048
     Dates: start: 20051108
  3. SUNRYTHM [Concomitant]
     Indication: VENTRICULAR ARRHYTHMIA
     Route: 048
     Dates: start: 20050925
  4. MUCOSTA [Concomitant]
     Indication: PROPHYLAXIS AGAINST GASTROINTESTINAL ULCER
     Route: 048
     Dates: start: 20051121
  5. SENNOSIDE A [Concomitant]
     Indication: CONSTIPATION
     Route: 048
     Dates: start: 20051027
  6. OMEPRAZOLE [Concomitant]
     Indication: PROPHYLAXIS AGAINST GASTROINTESTINAL ULCER
     Route: 048
     Dates: start: 20051027
  7. ALFACALCIDOL [Concomitant]
     Indication: OSTEOPOROSIS PROPHYLAXIS
     Route: 048

REACTIONS (2)
  - ANTIMICROBIAL SUSCEPTIBILITY TEST RESISTANT [None]
  - PULMONARY TUBERCULOSIS [None]
